FAERS Safety Report 14925351 (Version 1)
Quarter: 2018Q2

REPORT INFORMATION
  Report Type: Spontaneous
  Country: None (occurrence: US)
  Receive Date: 20180522
  Receipt Date: 20180522
  Transmission Date: 20180711
  Serious: No
  Sender: FDA-Public Use
  Company Number: US-MEDAC PHARMA, INC.-2048254

PATIENT
  Age: 69 Year

DRUGS (1)
  1. RASUVO [Suspect]
     Active Substance: METHOTREXATE SODIUM
     Indication: PITYRIASIS RUBRA PILARIS
     Dates: start: 201804

REACTIONS (2)
  - Product use in unapproved indication [None]
  - Disease recurrence [Unknown]
